FAERS Safety Report 8145637-1 (Version None)
Quarter: 2012Q1

REPORT INFORMATION
  Report Type: 
  Country: None (occurrence: None)
  Receive Date: 20120217
  Receipt Date: 20120206
  Transmission Date: 20120608
  Serious: Yes (Hospitalization)
  Sender: FDA-Public Use
  Company Number: US-MYLANLABS-2011S1000185

PATIENT
  Age: 11 Year
  Sex: Male

DRUGS (45)
  1. ULTIVA [Suspect]
     Route: 042
     Dates: start: 20100621, end: 20100708
  2. MORPHINE HYDROCHLORIDE [Suspect]
     Route: 041
     Dates: start: 20100621, end: 20100709
  3. LACTOBACILLUS CASEI [Suspect]
     Route: 048
     Dates: start: 20100702, end: 20100709
  4. LANSOPRAZOLE [Suspect]
     Route: 048
     Dates: start: 20100628, end: 20100728
  5. AMPICILLIN [Suspect]
     Route: 041
     Dates: start: 20100715, end: 20100716
  6. FUROSEMIDE [Suspect]
     Route: 048
     Dates: start: 20100626, end: 20100706
  7. EPINEPHRINE [Suspect]
     Route: 041
     Dates: start: 20100621, end: 20100621
  8. FENTANYL [Suspect]
     Route: 041
     Dates: start: 20100621, end: 20100708
  9. FAMOTIDINE [Suspect]
     Route: 048
     Dates: start: 20100626, end: 20100715
  10. NITRAZEPAM [Suspect]
     Route: 041
     Dates: start: 20100617, end: 20100709
  11. CEFTRIAXONE [Suspect]
     Indication: INFECTION
     Route: 041
     Dates: start: 20100630, end: 20100707
  12. NICARDIPINE HYDROCHLORIDE [Suspect]
     Route: 041
     Dates: start: 20100622, end: 20100624
  13. ROCURONIUM BROMIDE [Suspect]
     Route: 041
     Dates: start: 20100617, end: 20100706
  14. LIDOCAINE [Suspect]
     Route: 041
     Dates: start: 20100621, end: 20100709
  15. PIPERACILLIN SODIUM [Suspect]
     Route: 041
     Dates: start: 20100715, end: 20100716
  16. GLYCEROL 2.6% [Suspect]
     Route: 041
     Dates: start: 20100617, end: 20100618
  17. OFLOXACIN [Suspect]
     Route: 047
     Dates: start: 20100728, end: 20100729
  18. ACETAMINOPHEN [Suspect]
     Route: 054
     Dates: start: 20100630, end: 20100716
  19. FAMOTIDINE [Suspect]
     Route: 041
     Dates: start: 20100617, end: 20100626
  20. ACETAMINOPHEN [Suspect]
     Indication: PYREXIA
     Route: 048
     Dates: start: 20100627, end: 20100716
  21. CLINDAMYCIN PHOSPHATE [Suspect]
     Route: 042
     Dates: start: 20100708, end: 20100710
  22. TRICLOFOS SODIUM [Suspect]
     Route: 048
     Dates: start: 20100628, end: 20100705
  23. SODIUM PICOSULFATE [Suspect]
     Route: 048
     Dates: start: 20100620, end: 20100620
  24. HEPARIN SODIUM [Suspect]
     Route: 041
     Dates: start: 20100808, end: 20100812
  25. DEXPANTHENOL [Suspect]
     Route: 041
     Dates: start: 20100604, end: 20100705
  26. FLURBIPROFEN [Suspect]
     Route: 041
     Dates: start: 20100709, end: 20100709
  27. HYALURONATE SODIUM [Suspect]
     Route: 047
     Dates: start: 20100723, end: 20100821
  28. DIAZEPAM [Suspect]
     Route: 048
     Dates: start: 20100702, end: 20100722
  29. STREPTOCOCCUS FAECALIS [Suspect]
     Route: 048
     Dates: start: 20100711, end: 20100718
  30. BIOFERMIN T [Suspect]
     Route: 048
     Dates: start: 20100711, end: 20100718
  31. DEXAMETHASONE [Suspect]
     Route: 042
     Dates: start: 20100617, end: 20100622
  32. ATROPINE SULFATE [Suspect]
     Route: 041
     Dates: start: 20100617, end: 20100622
  33. CALCIUM GLUCONATE [Suspect]
     Route: 041
     Dates: start: 20100621, end: 20100621
  34. HYDROXYZINE HCL [Suspect]
     Route: 041
     Dates: start: 20100709, end: 20100709
  35. ETIZOLAM [Suspect]
     Dosage: UNIT CONT:1
     Route: 048
     Dates: start: 20100701, end: 20100701
  36. DIAZEPAM [Suspect]
     Route: 048
     Dates: start: 20100622, end: 20100701
  37. PHENOBARBITAL TAB [Suspect]
     Route: 048
     Dates: start: 20100622, end: 20100709
  38. RISPERIDONE [Suspect]
     Route: 048
     Dates: start: 20100702, end: 20100714
  39. OMEPRAZOLE [Suspect]
     Route: 041
     Dates: start: 20100716, end: 20100721
  40. GLYCEROL 2.6% [Suspect]
     Indication: CONSTIPATION
     Route: 054
     Dates: start: 20100621
  41. CEFAZOLIN [Suspect]
     Route: 041
     Dates: start: 20100622, end: 20100624
  42. MIDAZOLAM [Suspect]
     Route: 041
     Dates: start: 20100621, end: 20100621
  43. SPIRONOLACTONE [Suspect]
     Route: 048
     Dates: start: 20100626, end: 20100706
  44. HEPARIN SODIUM [Suspect]
     Route: 041
     Dates: start: 20100617
  45. DEXMEDETOMIDINE HYDROCHLORIDE [Suspect]
     Route: 041
     Dates: start: 20100704, end: 20100705

REACTIONS (1)
  - DRUG RASH WITH EOSINOPHILIA AND SYSTEMIC SYMPTOMS [None]
